FAERS Safety Report 4296626-9 (Version None)
Quarter: 2004Q1

REPORT INFORMATION
  Report Type: 
  Country: None (occurrence: None)
  Receive Date: 20040126
  Receipt Date: 20031112
  Transmission Date: 20041129
  Serious: Yes (Other)
  Sender: FDA-Public Use
  Company Number: 351704

PATIENT
  Age: 29 Year
  Sex: Female

DRUGS (7)
  1. VALCYTE [Suspect]
     Dosage: 450 MG 2 PER DAY OTHER
     Dates: start: 20030915
  2. SUSTIVA [Concomitant]
  3. EPIVIR [Concomitant]
  4. ZERIT [Concomitant]
  5. BACTRIM DS [Concomitant]
  6. LEVAQUIN [Concomitant]
  7. DIFLUCAN [Concomitant]

REACTIONS (2)
  - LEUKOPENIA [None]
  - RENAL FAILURE [None]
